FAERS Safety Report 17191660 (Version 1)
Quarter: 2019Q4

REPORT INFORMATION
  Report Type: Spontaneous
  Country: US (occurrence: US)
  Receive Date: 20191222
  Receipt Date: 20191222
  Transmission Date: 20200122
  Serious: Yes (Disabling)
  Sender: FDA-Public Use
  Company Number: None

PATIENT
  Age: 30 Year
  Sex: Female
  Weight: 81 kg

DRUGS (5)
  1. TYLENOL [Concomitant]
     Active Substance: ACETAMINOPHEN
  2. SERTRALINE 75MG [Concomitant]
     Active Substance: SERTRALINE HYDROCHLORIDE
  3. LEUPROLIDE ACETATE 7.5MG [Suspect]
     Active Substance: LEUPROLIDE ACETATE
     Indication: ENDOMETRIOSIS
     Dosage: ?          QUANTITY:1 INJECTION(S);OTHER FREQUENCY:ONCE A MONTH;?
     Route: 030
     Dates: start: 20160501, end: 20170401
  4. FAMOTIDINE. [Concomitant]
     Active Substance: FAMOTIDINE
  5. HYDROXYZINE PRN [Concomitant]

REACTIONS (9)
  - Alopecia [None]
  - Hypothyroidism [None]
  - Tooth disorder [None]
  - Amnesia [None]
  - Nerve injury [None]
  - Anxiety [None]
  - White blood cell count increased [None]
  - Arthralgia [None]
  - Depression [None]
